FAERS Safety Report 17999375 (Version 2)
Quarter: 2020Q3

REPORT INFORMATION
  Report Type: Spontaneous
  Country: PL (occurrence: PL)
  Receive Date: 20200709
  Receipt Date: 20200728
  Transmission Date: 20201103
  Serious: Yes (Other)
  Sender: FDA-Public Use
  Company Number: NVSC2020PL186172

PATIENT
  Age: 30 Year
  Sex: Female

DRUGS (10)
  1. AZITHROMYCIN ANHYDROUS. [Suspect]
     Active Substance: AZITHROMYCIN ANHYDROUS
     Indication: COVID-19
     Dosage: 500 MG, QD
     Route: 065
     Dates: start: 20200417, end: 20200419
  2. AZITHROMYCIN ANHYDROUS. [Suspect]
     Active Substance: AZITHROMYCIN ANHYDROUS
     Indication: COVID-19 PNEUMONIA
     Dosage: 250 MG, QD
     Route: 065
     Dates: start: 20200420, end: 20200424
  3. TOCILIZUMAB. [Suspect]
     Active Substance: TOCILIZUMAB
     Indication: COVID-19
     Dosage: 480 MG, WO SEPARATED DOSES 8 MG/KG EVERY 12?24 H
     Route: 042
     Dates: start: 20200422, end: 20200423
  4. CHLOROQUINE. [Suspect]
     Active Substance: CHLOROQUINE
     Indication: COVID-19
     Dosage: 250 MG, BID
     Route: 065
     Dates: start: 20200422, end: 20200427
  5. CHLOROQUINE. [Suspect]
     Active Substance: CHLOROQUINE
     Indication: COVID-19 PNEUMONIA
     Dosage: 500 MG
     Route: 065
     Dates: start: 20200417, end: 20200421
  6. LOPINAVIR/RITONAVIR [Suspect]
     Active Substance: LOPINAVIR\RITONAVIR
     Indication: COVID-19 PNEUMONIA
  7. TOCILIZUMAB. [Suspect]
     Active Substance: TOCILIZUMAB
     Indication: COVID-19 PNEUMONIA
  8. THYROXINE [Concomitant]
     Active Substance: LEVOTHYROXINE
     Indication: HYPOTHYROIDISM
     Dosage: UNK
     Route: 065
  9. METHYLPREDNISOLONE. [Concomitant]
     Active Substance: METHYLPREDNISOLONE
     Indication: PRODUCT USED FOR UNKNOWN INDICATION
     Dosage: UNK, FOR 3 CONSECUTIVE DAYS
     Route: 065
     Dates: start: 20200424, end: 20200426
  10. LOPINAVIR/RITONAVIR [Suspect]
     Active Substance: LOPINAVIR\RITONAVIR
     Indication: COVID-19
     Dosage: 500 MG
     Route: 065
     Dates: start: 20200421, end: 20200428

REACTIONS (3)
  - Intentional product use issue [Unknown]
  - Interleukin level increased [Unknown]
  - Off label use [Unknown]
